FAERS Safety Report 17260356 (Version 4)
Quarter: 2020Q1

REPORT INFORMATION
  Report Type: Spontaneous
  Country: AR (occurrence: AR)
  Receive Date: 20200112
  Receipt Date: 20200129
  Transmission Date: 20200409
  Serious: Yes (Death, Other)
  Sender: FDA-Public Use
  Company Number: AR-BIOGEN-2020BI00825664

PATIENT
  Age: 8 Month
  Sex: Female
  Weight: 7.5 kg

DRUGS (5)
  1. SPINRAZA [Suspect]
     Active Substance: NUSINERSEN
     Dosage: LOADING DOSE
     Route: 037
     Dates: start: 20191129, end: 20200103
  2. SPINRAZA [Suspect]
     Active Substance: NUSINERSEN
     Dosage: 4TH DOSE FROM THE BEGINNING OF TREATMENT PROTOCOL
     Route: 065
     Dates: start: 20200103, end: 20200122
  3. SPINRAZA [Suspect]
     Active Substance: NUSINERSEN
     Indication: SPINAL MUSCULAR ATROPHY
     Dosage: LOADING DOSE
     Route: 037
     Dates: start: 20191031, end: 20191129
  4. SPINRAZA [Suspect]
     Active Substance: NUSINERSEN
     Route: 037
     Dates: start: 20191031
  5. SPINRAZA [Suspect]
     Active Substance: NUSINERSEN
     Route: 065

REACTIONS (13)
  - Pyrexia [Recovered/Resolved]
  - Autonomic nervous system imbalance [Fatal]
  - Adverse drug reaction [Unknown]
  - Pupillary light reflex tests abnormal [Unknown]
  - Pneumonia [Unknown]
  - Haemodynamic instability [Unknown]
  - Myocardial infarction [Unknown]
  - Escherichia urinary tract infection [Unknown]
  - Infection [Unknown]
  - Hypertensive crisis [Unknown]
  - Cardio-respiratory arrest [Unknown]
  - Cardiac autonomic neuropathy [Unknown]
  - Bacterial disease carrier [Unknown]

NARRATIVE: CASE EVENT DATE: 20200103
